FAERS Safety Report 6151986-9 (Version None)
Quarter: 2009Q2

REPORT INFORMATION
  Report Type: 
  Country: None (occurrence: None)
  Receive Date: 20090409
  Receipt Date: 20090409
  Transmission Date: 20091009
  Serious: Yes (Death)
  Sender: FDA-Public Use
  Company Number: None

PATIENT
  Age: 52 Year
  Sex: Female
  Weight: 64 kg

DRUGS (3)
  1. RITUXAN [Suspect]
     Indication: BLOOD DISORDER
     Dosage: EVERY 3 WEEKS IV
     Route: 042
     Dates: start: 20070720
  2. FLUDARA [Suspect]
     Indication: BLOOD DISORDER
     Dosage: EVERY 3 WEEKS IV
     Route: 042
     Dates: start: 20070720
  3. CYTOXAN [Suspect]

REACTIONS (4)
  - LUNG INJURY [None]
  - PANCYTOPENIA [None]
  - PNEUMOCYSTIS JIROVECI PNEUMONIA [None]
  - PNEUMONIA CYTOMEGALOVIRAL [None]
